FAERS Safety Report 5707149-1 (Version None)
Quarter: 2008Q2

REPORT INFORMATION
  Report Type: 
  Country: None (occurrence: None)
  Receive Date: 20080416
  Receipt Date: 20080414
  Transmission Date: 20081010
  Serious: Yes (Life-Threatening, Other)
  Sender: FDA-Public Use
  Company Number: NL-BRISTOL-MYERS SQUIBB COMPANY-14151179

PATIENT
  Age: 60 Year
  Sex: Female
  Weight: 54 kg

DRUGS (7)
  1. NEWACE-10 [Suspect]
     Indication: CARDIOVASCULAR DISORDER
     Dosage: DOSE INCREASED FROM 10MG-20MG
  2. METOPROLOL TARTRATE [Concomitant]
  3. LABETALOL HCL [Concomitant]
  4. CINNARIZINE [Concomitant]
  5. ATORVASTATIN [Concomitant]
  6. ZOPICLONE [Concomitant]
  7. SERTRALINE [Concomitant]

REACTIONS (3)
  - CARDIAC ARREST [None]
  - COMA [None]
  - VESTIBULAR NEURONITIS [None]
